FAERS Safety Report 21233639 (Version 1)
Quarter: 2022Q3

REPORT INFORMATION
  Report Type: Report from Study
  Country: GB (occurrence: GB)
  Receive Date: 20220819
  Receipt Date: 20220819
  Transmission Date: 20221026
  Serious: Yes (Death, Hospitalization, Other)
  Sender: FDA-Public Use
  Company Number: GB-JNJFOC-20220542239

PATIENT
  Age: 73 Year
  Sex: Male

DRUGS (2)
  1. ABIRATERONE ACETATE [Suspect]
     Active Substance: ABIRATERONE ACETATE
     Indication: Prostate cancer
     Dosage: 1000 MILLIGRAM DAILY; UNIT DOSE : 1000 MG, FREQUENCY ; 1, FREQUENCY TIME : 1 DAYS, THERAPY DURATION:
     Route: 048
     Dates: start: 20220506, end: 20220519
  2. PREDNISOLONE [Concomitant]
     Active Substance: PREDNISOLONE
     Indication: Prostate cancer
     Dosage: 10 MILLIGRAM DAILY; UNIT DOSE : 10 MG, FREQUENCY ; 1, FREQUENCY TIME : 1 DAYS, THERAPY DURATION: 33
     Route: 048
     Dates: start: 20220506, end: 20220608

REACTIONS (7)
  - Prostate cancer metastatic [Fatal]
  - Colitis [Fatal]
  - Femoral neck fracture [Not Recovered/Not Resolved]
  - Haematuria [Not Recovered/Not Resolved]
  - Dizziness [Not Recovered/Not Resolved]
  - Chromaturia [Not Recovered/Not Resolved]
  - Fall [Unknown]

NARRATIVE: CASE EVENT DATE: 20220501
